FAERS Safety Report 5307225-1 (Version None)
Quarter: 2007Q1

REPORT INFORMATION
  Report Type: 
  Country: None (occurrence: None)
  Receive Date: 20070201
  Receipt Date: 20061205
  Transmission Date: 20070707
  Serious: No
  Sender: FDA-Public Use
  Company Number: 2006PV026379

PATIENT
  Age: 67 Year
  Sex: Male

DRUGS (14)
  1. BYETTA [Suspect]
     Indication: DIABETES MELLITUS
     Dosage: 5 MCG; BID; SC
     Route: 058
     Dates: start: 20061124, end: 20061202
  2. NEURONTIN [Concomitant]
  3. SONATA [Concomitant]
  4. GLUCOTROL [Concomitant]
  5. POTASSIUM ACETATE [Concomitant]
  6. MAGNESIUM SULFATE [Concomitant]
  7. PLAVIX [Concomitant]
  8. ASPIRIN [Concomitant]
  9. CRESTOR [Concomitant]
  10. TRICOR [Concomitant]
  11. ANDROGEL [Concomitant]
  12. FUROSEMIDE [Concomitant]
  13. ZAROXOLYN [Concomitant]
  14. ULTRAM [Concomitant]

REACTIONS (5)
  - DIZZINESS [None]
  - DRY MOUTH [None]
  - LOSS OF CONSCIOUSNESS [None]
  - MYALGIA [None]
  - NAUSEA [None]
